FAERS Safety Report 8819756 (Version 1)
Quarter: 2012Q4

REPORT INFORMATION
  Report Type: 
  Country: US (occurrence: US)
  Receive Date: 20121001
  Receipt Date: 20121001
  Transmission Date: 20130627
  Serious: Yes (Other)
  Sender: FDA-Public Use
  Company Number: US-ELI_LILLY_AND_COMPANY-US201209006721

PATIENT
  Sex: Male
  Weight: 82.54 kg

DRUGS (4)
  1. BYETTA [Suspect]
     Indication: TYPE 2 DIABETES MELLITUS
     Dosage: 5 ug, bid
     Route: 058
     Dates: start: 201203
  2. BYETTA [Suspect]
     Dosage: 10 ug, bid
     Route: 058
     Dates: start: 201208
  3. ACTOS [Concomitant]
     Indication: TYPE 2 DIABETES MELLITUS
  4. JANUVIA [Concomitant]
     Indication: TYPE 2 DIABETES MELLITUS

REACTIONS (7)
  - Back pain [Unknown]
  - Blood glucose increased [Not Recovered/Not Resolved]
  - Underdose [Unknown]
  - Weight decreased [Unknown]
  - Blood glucose decreased [Recovered/Resolved]
  - Nausea [Unknown]
  - Decreased appetite [Unknown]
